FAERS Safety Report 8400165-0 (Version None)
Quarter: 2012Q2

REPORT INFORMATION
  Report Type: 
  Country: None (occurrence: None)
  Receive Date: 20120531
  Receipt Date: 20120525
  Transmission Date: 20120825
  Serious: Yes (Congenital Anomaly, Other)
  Sender: FDA-Public Use
  Company Number: US-PFIZER INC-2012128686

PATIENT
  Sex: Male

DRUGS (4)
  1. ZOLOFT [Suspect]
     Indication: DEPRESSION
     Dosage: 25 MG, UNK
     Route: 064
     Dates: start: 20100503
  2. MULTI-VITAMINS [Concomitant]
     Dosage: UNK
     Route: 064
  3. ONDANSETRON [Concomitant]
     Dosage: 8 MG, UNK
     Route: 064
     Dates: start: 20100503
  4. ERYTHROMYCIN [Concomitant]
     Dosage: UNK
     Route: 064
     Dates: start: 20101030

REACTIONS (3)
  - MATERNAL EXPOSURE TIMING UNSPECIFIED [None]
  - VENTRICULAR SEPTAL DEFECT [None]
  - PATENT DUCTUS ARTERIOSUS [None]
